FAERS Safety Report 4953950-1 (Version None)
Quarter: 2006Q1

REPORT INFORMATION
  Report Type: 
  Country: None (occurrence: None)
  Receive Date: 20060327
  Receipt Date: 20060316
  Transmission Date: 20060701
  Serious: Yes (Hospitalization)
  Sender: FDA-Public Use
  Company Number: FI-BRISTOL-MYERS SQUIBB COMPANY-13317516

PATIENT
  Age: 71 Year
  Sex: Male
  Weight: 74 kg

DRUGS (15)
  1. CISPLATIN [Suspect]
     Indication: NON-SMALL CELL LUNG CANCER
     Route: 042
     Dates: start: 20050629, end: 20050629
  2. ALIMTA [Suspect]
     Indication: NON-SMALL CELL LUNG CANCER
     Route: 042
     Dates: start: 20050506, end: 20050629
  3. CITALOPRAM HYDROBROMIDE [Concomitant]
     Indication: DEPRESSION
  4. OXYCODONE [Concomitant]
     Indication: CHEST PAIN
     Dates: start: 20050422
  5. ACETAMINOPHEN [Concomitant]
     Indication: CHEST PAIN
     Dates: start: 20050620
  6. HALOPERIDOL [Concomitant]
     Indication: NAUSEA
     Dates: start: 20050429
  7. METOCLOPRAMIDE [Concomitant]
     Indication: NAUSEA
     Dates: start: 20050506
  8. LANSOPRAZOLE [Concomitant]
     Indication: OESOPHAGITIS
  9. OXAZEPAM [Concomitant]
     Indication: INSOMNIA
  10. FINASTERIDE [Concomitant]
     Indication: BENIGN PROSTATIC HYPERPLASIA
  11. FOLVITE [Concomitant]
     Dates: start: 20050420
  12. VITAMIN B-12 [Concomitant]
     Dates: start: 20050420
  13. LACTULOSE [Concomitant]
     Indication: CONSTIPATION
     Dates: start: 20050620
  14. PREDNISOLONE [Concomitant]
     Indication: FATIGUE
     Dates: start: 20050630
  15. ONDANSETRON [Concomitant]
     Indication: NAUSEA
     Dates: start: 20050729

REACTIONS (3)
  - ANAEMIA [None]
  - FALL [None]
  - FATIGUE [None]
